FAERS Safety Report 12747354 (Version 1)
Quarter: 2016Q3

REPORT INFORMATION
  Report Type: Spontaneous
  Country: US (occurrence: US)
  Receive Date: 20160915
  Receipt Date: 20160915
  Transmission Date: 20161109
  Serious: No
  Sender: FDA-Public Use
  Company Number: US-JAZZ-2016-US-009633

PATIENT
  Sex: Female

DRUGS (24)
  1. LIDODERM [Concomitant]
     Active Substance: LIDOCAINE
  2. NUVIGIL [Concomitant]
     Active Substance: ARMODAFINIL
  3. XYREM [Suspect]
     Active Substance: SODIUM OXYBATE
     Indication: INSOMNIA
     Dosage: 2.25 G, BID
     Route: 048
     Dates: start: 200902, end: 200904
  4. XYREM [Suspect]
     Active Substance: SODIUM OXYBATE
     Dosage: 2.25 G, BID
     Route: 048
     Dates: start: 200908, end: 2010
  5. SYNTHROID [Concomitant]
     Active Substance: LEVOTHYROXINE SODIUM
  6. TEMAZEPAM. [Concomitant]
     Active Substance: TEMAZEPAM
  7. SKELAXIN [Concomitant]
     Active Substance: METAXALONE
  8. XANAX [Concomitant]
     Active Substance: ALPRAZOLAM
  9. PATANOL [Suspect]
     Active Substance: OLOPATADINE HYDROCHLORIDE
     Indication: PRODUCT USED FOR UNKNOWN INDICATION
  10. CARAFATE [Concomitant]
     Active Substance: SUCRALFATE
  11. FENTANYL. [Concomitant]
     Active Substance: FENTANYL
  12. FLEXERIL [Concomitant]
     Active Substance: CYCLOBENZAPRINE HYDROCHLORIDE
  13. PERCOCET [Concomitant]
     Active Substance: ACETAMINOPHEN\OXYCODONE HYDROCHLORIDE
  14. PRILOSEC [Concomitant]
     Active Substance: OMEPRAZOLE MAGNESIUM
  15. XYREM [Suspect]
     Active Substance: SODIUM OXYBATE
     Dosage: 2.5 G, BID
     Route: 048
     Dates: start: 200904, end: 200908
  16. XYREM [Suspect]
     Active Substance: SODIUM OXYBATE
     Dosage: 2.25 G, BID
     Route: 048
     Dates: start: 201010, end: 201101
  17. NORVASC [Concomitant]
     Active Substance: AMLODIPINE BESYLATE
  18. PROVIGIL [Concomitant]
     Active Substance: MODAFINIL
  19. XYREM [Suspect]
     Active Substance: SODIUM OXYBATE
     Dosage: DOSE ADJUSTMENTS
     Route: 048
  20. XYREM [Suspect]
     Active Substance: SODIUM OXYBATE
     Dosage: 2.5 G, BID
     Route: 048
     Dates: start: 201512
  21. MULTIVITAMIN WITH MINERALS [Concomitant]
     Active Substance: MINERALS\VITAMINS
  22. ECOTRIN [Concomitant]
     Active Substance: ASPIRIN
  23. TOPAMAX [Concomitant]
     Active Substance: TOPIRAMATE
  24. VIVELLE-DOT [Concomitant]
     Active Substance: ESTRADIOL

REACTIONS (7)
  - Muscle spasms [Not Recovered/Not Resolved]
  - Anxiety [Recovering/Resolving]
  - Somnolence [Unknown]
  - Headache [Not Recovered/Not Resolved]
  - Therapeutic response unexpected [Unknown]
  - Vision blurred [Unknown]
  - Drug hypersensitivity [Unknown]
